FAERS Safety Report 19030005 (Version 6)
Quarter: 2023Q1

REPORT INFORMATION
  Report Type: Report from Study
  Country: CN (occurrence: None)
  Receive Date: 20210319
  Receipt Date: 20230109
  Transmission Date: 20230418
  Serious: Yes (Hospitalization)
  Sender: FDA-Public Use
  Company Number: CN-ROCHE-2790328

PATIENT
  Age: 57 Year
  Sex: Female
  Weight: 66 kg

DRUGS (11)
  1. ATEZOLIZUMAB [Suspect]
     Active Substance: ATEZOLIZUMAB
     Indication: Non-small cell lung cancer stage IV
     Dosage: ON 22/FEB/2021 RECEIVED MOST RECENT DOSE (1200 MG) OF ATEZOLIZUMAB PRIOR TO ADVERSE EVENT ONSET.?ON
     Route: 041
     Dates: start: 20201204
  2. BEVACIZUMAB [Suspect]
     Active Substance: BEVACIZUMAB
     Indication: Non-small cell lung cancer stage IV
     Dosage: ON 22/FEB/2021 RECEIVED MOST RECENT DOSE OF BEVACIZUMAB PRIOR TO ADVERSE EVENT.?ON 26/JAN/2021 RECEI
     Route: 042
     Dates: start: 20201204
  3. CARBOPLATIN [Suspect]
     Active Substance: CARBOPLATIN
     Indication: Non-small cell lung cancer stage IV
     Dosage: ON 22/FEB/2021 RECEIVED MOST RECENT DOSE OF CARBOPLATIN (550 MG) PRIOR TO ADVERSE EVENT ONSET.?ON 26
     Route: 042
     Dates: start: 20201204
  4. PEMETREXED [Suspect]
     Active Substance: PEMETREXED
     Indication: Non-small cell lung cancer stage IV
     Dosage: ON 22/FEB/2021 RECEIVED MOST RECENT DOSE OF PEMETREXED (840 MG) PRIOR TO ADVERSE EVENT. ?ON 26/JAN/2
     Route: 042
     Dates: start: 20201204
  5. DEXAMETHASONE ACETATE [Concomitant]
     Active Substance: DEXAMETHASONE ACETATE
     Route: 048
     Dates: start: 20210221, end: 20210223
  6. DEXAMETHASONE ACETATE [Concomitant]
     Active Substance: DEXAMETHASONE ACETATE
     Route: 048
     Dates: start: 20210317, end: 20210319
  7. DOLASETRON MESYLATE [Concomitant]
     Active Substance: DOLASETRON MESYLATE
     Route: 042
     Dates: start: 20210222, end: 20210223
  8. RANITIDINE HYDROCHLORIDE [Concomitant]
     Active Substance: RANITIDINE HYDROCHLORIDE
     Route: 042
     Dates: start: 20210222, end: 20210223
  9. GRANULOCYTE COLONY-STIMULATING FACTOR NOS [Concomitant]
     Active Substance: GRANULOCYTE COLONY-STIMULATING FACTOR NOS
     Route: 058
     Dates: start: 20210217, end: 20210217
  10. THROMBOPOIETIN [Concomitant]
     Active Substance: THROMBOPOIETIN
     Route: 058
     Dates: start: 20210312, end: 20210313
  11. FOLIC ACID [Concomitant]
     Active Substance: FOLIC ACID
     Dates: start: 20201202

REACTIONS (1)
  - Platelet count decreased [Recovered/Resolved]

NARRATIVE: CASE EVENT DATE: 20210311
